FAERS Safety Report 12826166 (Version 2)
Quarter: 2019Q1

REPORT INFORMATION
  Report Type: Spontaneous
  Country: US (occurrence: US)
  Receive Date: 20161006
  Receipt Date: 20190222
  Transmission Date: 20190417
  Serious: No
  Sender: FDA-Public Use
  Company Number: US-JAZZ-2016-US-012519

PATIENT
  Sex: Female

DRUGS (51)
  1. LOTRONEX [Concomitant]
     Active Substance: ALOSETRON HYDROCHLORIDE
  2. LAMOTRIGINE. [Concomitant]
     Active Substance: LAMOTRIGINE
  3. DICLOFENAC [Concomitant]
     Active Substance: DICLOFENAC
  4. OXYCODONE AND ACETAMINOPHEN [Concomitant]
     Active Substance: ACETAMINOPHEN\OXYCODONE HYDROCHLORIDE
  5. FLUDROCORTISONE [Concomitant]
     Active Substance: FLUDROCORTISONE
  6. MESTINON [Concomitant]
     Active Substance: PYRIDOSTIGMINE BROMIDE
  7. CYCLOBENZAPRINE. [Concomitant]
     Active Substance: CYCLOBENZAPRINE
  8. LEXAPRO [Concomitant]
     Active Substance: ESCITALOPRAM OXALATE
  9. OXYCODONE HYDROCHLORIDE W/OXYCODONE TEREPHTHA [Concomitant]
     Active Substance: OXYCODONE HYDROCHLORIDE\OXYCODONE TEREPHTHALATE
  10. BISOPROLOL FUMARATE. [Concomitant]
     Active Substance: BISOPROLOL FUMARATE
  11. PLANTAGO OVATA [Concomitant]
     Active Substance: HERBALS\PLANTAGO OVATA LEAF
  12. MICROGESTIN [Concomitant]
     Active Substance: ETHINYL ESTRADIOL\NORETHINDRONE ACETATE
  13. ASCORBIC ACID. [Concomitant]
     Active Substance: ASCORBIC ACID
  14. PRIMIDONE. [Concomitant]
     Active Substance: PRIMIDONE
  15. XANAX [Concomitant]
     Active Substance: ALPRAZOLAM
  16. CLONAZEPAM. [Concomitant]
     Active Substance: CLONAZEPAM
  17. WELCHOL [Concomitant]
     Active Substance: COLESEVELAM HYDROCHLORIDE
  18. MAXALT [Concomitant]
     Active Substance: RIZATRIPTAN BENZOATE
  19. MIRALAX [Concomitant]
     Active Substance: POLYETHYLENE GLYCOL 3350
  20. XYREM [Suspect]
     Active Substance: SODIUM OXYBATE
     Indication: CATAPLEXY
     Dosage: DOSE ADJUSTMENTS
     Route: 048
     Dates: start: 200710, end: 201310
  21. XYREM [Suspect]
     Active Substance: SODIUM OXYBATE
     Dosage: 4.5 G, BID
     Route: 048
     Dates: start: 201310
  22. PREDNISONE. [Concomitant]
     Active Substance: PREDNISONE
  23. TRAMADOL HCL [Concomitant]
     Active Substance: TRAMADOL HYDROCHLORIDE
  24. HYDROCODONE BITARTRATE AND ACETAMINOPHEN [Concomitant]
     Active Substance: ACETAMINOPHEN\HYDROCODONE BITARTRATE
  25. MORPHINE SULF [Concomitant]
     Active Substance: MORPHINE SULFATE
  26. CROMOGLICIC ACID [Concomitant]
     Active Substance: CROMOLYN
  27. NAPROXEN. [Suspect]
     Active Substance: NAPROXEN
     Indication: MIGRAINE
     Dosage: UNK
     Dates: start: 201606, end: 2016
  28. NAPROXEN. [Suspect]
     Active Substance: NAPROXEN
     Dosage: 4.5G, BID
     Dates: start: 201310
  29. BUTRANS [Concomitant]
     Active Substance: BUPRENORPHINE
  30. ERGOCALCIFEROL. [Concomitant]
     Active Substance: ERGOCALCIFEROL
  31. SUMATRIPTAN. [Concomitant]
     Active Substance: SUMATRIPTAN
  32. HYDROMORPHONE HCL [Concomitant]
     Active Substance: HYDROMORPHONE HYDROCHLORIDE
  33. DULOXETINE HCL [Concomitant]
     Active Substance: DULOXETINE HYDROCHLORIDE
  34. NIZORAL [Concomitant]
     Active Substance: KETOCONAZOLE
  35. SUMATRIPTAN SUCCINATE. [Concomitant]
     Active Substance: SUMATRIPTAN SUCCINATE
  36. DIPHENHYDRAMINE HYDROCHLORIDE. [Concomitant]
     Active Substance: DIPHENHYDRAMINE HYDROCHLORIDE
  37. OMEPRAZOLE. [Concomitant]
     Active Substance: OMEPRAZOLE
  38. DIAZEPAM. [Concomitant]
     Active Substance: DIAZEPAM
  39. FLORINEF ACETATE [Concomitant]
     Active Substance: FLUDROCORTISONE ACETATE
  40. NAPROXEN. [Suspect]
     Active Substance: NAPROXEN
     Dosage: UNK
     Route: 048
     Dates: start: 200710, end: 201310
  41. ROBAXIN [Concomitant]
     Active Substance: METHOCARBAMOL
  42. OSCIMIN [Concomitant]
     Active Substance: HYOSCYAMINE SULFATE
  43. KETOCONAZOLE. [Concomitant]
     Active Substance: KETOCONAZOLE
  44. XYREM [Suspect]
     Active Substance: SODIUM OXYBATE
     Indication: NARCOLEPSY
     Dosage: 3.75 G, BID
     Route: 048
     Dates: start: 200406, end: 200710
  45. NAPROXEN. [Suspect]
     Active Substance: NAPROXEN
     Dosage: 3.75G, BID
     Route: 048
     Dates: start: 200406, end: 2007
  46. ZEBETA [Concomitant]
     Active Substance: BISOPROLOL FUMARATE
  47. GABAPENTIN. [Concomitant]
     Active Substance: GABAPENTIN
  48. ONDANSETRON HCL [Concomitant]
     Active Substance: ONDANSETRON HYDROCHLORIDE
  49. TIZANIDINE HCL [Concomitant]
     Active Substance: TIZANIDINE HYDROCHLORIDE
  50. FENTANYL. [Concomitant]
     Active Substance: FENTANYL
  51. DIPHENOXYLATE/ATROPINE [Concomitant]
     Active Substance: ATROPINE\DIPHENOXYLATE

REACTIONS (2)
  - Dyspepsia [Unknown]
  - Migraine [Recovered/Resolved]

NARRATIVE: CASE EVENT DATE: 2016
